FAERS Safety Report 9013641 (Version 1)
Quarter: 2013Q1

REPORT INFORMATION
  Report Type: Spontaneous
  Country: US (occurrence: None)
  Receive Date: 20130109
  Receipt Date: 20130109
  Transmission Date: 20140127
  Serious: Yes (Hospitalization)
  Sender: FDA-Public Use
  Company Number: None

PATIENT
  Age: 46 Year
  Sex: Male
  Weight: 65.4 kg

DRUGS (1)
  1. LITHIUM [Suspect]
     Indication: DEPRESSION

REACTIONS (13)
  - Hypophagia [None]
  - Aphasia [None]
  - Hyperreflexia [None]
  - Tremor [None]
  - Asterixis [None]
  - Toxicity to various agents [None]
  - Gastroenteritis viral [None]
  - Renal failure acute [None]
  - Electrocardiogram QT prolonged [None]
  - Hypokalaemia [None]
  - Confusional state [None]
  - Asthenia [None]
  - Dysgeusia [None]
